FAERS Safety Report 5834932-4 (Version None)
Quarter: 2008Q3

REPORT INFORMATION
  Report Type: 
  Country: None (occurrence: None)
  Receive Date: 20080801
  Receipt Date: 20080717
  Transmission Date: 20090109
  Serious: Yes (Other)
  Sender: FDA-Public Use
  Company Number: 2008S1012725

PATIENT
  Age: 73 Year

DRUGS (1)
  1. OMEPRAZOLE [Suspect]
     Indication: BARRETT'S OESOPHAGUS
     Dosage: 20 MG; ; ORAL
     Route: 048
     Dates: end: 20071201

REACTIONS (1)
  - NEPHRITIS INTERSTITIAL [None]
